FAERS Safety Report 23916727 (Version 9)
Quarter: 2025Q2

REPORT INFORMATION
  Report Type: Spontaneous
  Country: JP (occurrence: JP)
  Receive Date: 20240529
  Receipt Date: 20250422
  Transmission Date: 20250716
  Serious: Yes (Hospitalization, Other)
  Sender: APELLIS PHARMACEUTICALS
  Company Number: JP-BIOVITRUM-2024-JP-002089

PATIENT

DRUGS (4)
  1. PEGCETACOPLAN [Suspect]
     Active Substance: PEGCETACOPLAN
     Indication: Paroxysmal nocturnal haemoglobinuria
     Dosage: 1080 MG TWICE A WEEK
     Route: 058
  2. PEGCETACOPLAN [Suspect]
     Active Substance: PEGCETACOPLAN
     Dosage: 1080 MG THREE TIMES A WEEK
     Route: 058
  3. PEGCETACOPLAN [Suspect]
     Active Substance: PEGCETACOPLAN
     Dosage: TWICE PER WEEK
     Route: 058
     Dates: start: 20231205
  4. PEGCETACOPLAN [Suspect]
     Active Substance: PEGCETACOPLAN
     Route: 058

REACTIONS (27)
  - Haemolysis [Recovering/Resolving]
  - Injection site scar [Not Recovered/Not Resolved]
  - Influenza [Not Recovered/Not Resolved]
  - Nausea [Recovered/Resolved]
  - Flatulence [Recovering/Resolving]
  - Malaise [Not Recovered/Not Resolved]
  - Loss of personal independence in daily activities [Recovering/Resolving]
  - Hypertension [Unknown]
  - Fatigue [Not Recovered/Not Resolved]
  - Pyrexia [Recovering/Resolving]
  - Chest pain [Unknown]
  - Abdominal pain [Recovered/Resolved]
  - Inflammation [Recovering/Resolving]
  - Dry skin [Unknown]
  - Chromaturia [Recovered/Resolved]
  - Eczema [Unknown]
  - Hypersensitivity [Recovered/Resolved]
  - Palpitations [Recovered/Resolved]
  - Haemoglobin decreased [Not Recovered/Not Resolved]
  - C-reactive protein increased [Recovering/Resolving]
  - Arthralgia [Unknown]
  - Decreased appetite [Unknown]
  - Hypopnoea [Unknown]
  - Lung opacity [Unknown]
  - Injection site haemorrhage [Recovered/Resolved]
  - Injection site swelling [Recovered/Resolved]
  - Injection site pallor [Recovered/Resolved]

NARRATIVE: CASE EVENT DATE: 20240708
